FAERS Safety Report 7530737-7 (Version None)
Quarter: 2011Q2

REPORT INFORMATION
  Report Type: 
  Country: None (occurrence: None)
  Receive Date: 20110607
  Receipt Date: 20110524
  Transmission Date: 20111010
  Serious: Yes (Death, Other)
  Sender: FDA-Public Use
  Company Number: US-WATSON-2010-15339

PATIENT
  Age: 19 Year
  Sex: Male

DRUGS (1)
  1. LAMOTRIGINE [Suspect]
     Indication: SUICIDE ATTEMPT
     Dosage: UNK
     Route: 048

REACTIONS (11)
  - INTENTIONAL OVERDOSE [None]
  - CARDIOGENIC SHOCK [None]
  - ELECTROCARDIOGRAM QRS COMPLEX PROLONGED [None]
  - CARDIAC ARREST [None]
  - HYPOTENSION [None]
  - PULSE ABSENT [None]
  - CONVULSION [None]
  - RENAL FAILURE [None]
  - MULTI-ORGAN FAILURE [None]
  - DISSEMINATED INTRAVASCULAR COAGULATION [None]
  - ATRIOVENTRICULAR BLOCK COMPLETE [None]
